FAERS Safety Report 9381452 (Version 1)
Quarter: 2013Q3

REPORT INFORMATION
  Report Type: Spontaneous
  Country: JP (occurrence: JP)
  Receive Date: 20130703
  Receipt Date: 20130703
  Transmission Date: 20140515
  Serious: Yes (Hospitalization, Other)
  Sender: FDA-Public Use
  Company Number: PHHY2013JP067425

PATIENT
  Age: 77 Year
  Sex: Male

DRUGS (5)
  1. RASILEZ [Suspect]
     Indication: HYPERTENSION
     Dosage: 150 MG, DAILY
     Route: 048
     Dates: start: 20110527
  2. SALICYLAMIDE [Suspect]
     Dosage: UNK UKN, UNK
  3. OLMETEC [Concomitant]
     Dosage: UNK UKN, UNK
     Route: 048
     Dates: start: 200504
  4. OLMETEC [Concomitant]
     Dosage: 40 MG, IN TWO DIVIDED ADMINISTRATIONS; ONCE IN THE MORNING AND ANOTHER IN THE EVENING
     Route: 048
     Dates: start: 2011
  5. NORVASC [Concomitant]
     Dosage: 1 DF, DAILY

REACTIONS (8)
  - Diarrhoea [Unknown]
  - Opportunistic infection [Unknown]
  - Benign prostatic hyperplasia [Unknown]
  - Urinary retention [Unknown]
  - Weight decreased [Unknown]
  - Blood pressure increased [Unknown]
  - General physical health deterioration [Unknown]
  - Chromaturia [Unknown]
